FAERS Safety Report 13211352 (Version 1)
Quarter: 2017Q1

REPORT INFORMATION
  Report Type: Report from Study
  Country: GB (occurrence: GB)
  Receive Date: 20170210
  Receipt Date: 20170210
  Transmission Date: 20170428
  Serious: Yes (Hospitalization, Other)
  Sender: FDA-Public Use
  Company Number: GB-TEVA-737038ACC

PATIENT
  Age: 49 Year
  Sex: Male

DRUGS (1)
  1. COPAXONE [Suspect]
     Active Substance: GLATIRAMER ACETATE
     Dosage: 20 MILLIGRAM/MILLILITERS DAILY;
     Route: 058

REACTIONS (6)
  - Feeling hot [Unknown]
  - Tremor [Unknown]
  - Arthralgia [Unknown]
  - Flushing [Unknown]
  - Adverse drug reaction [Unknown]
  - Speech disorder [Unknown]

NARRATIVE: CASE EVENT DATE: 20161206
